FAERS Safety Report 6544611-6 (Version None)
Quarter: 2010Q1

REPORT INFORMATION
  Report Type: 
  Country: None (occurrence: None)
  Receive Date: 20100121
  Receipt Date: 20100111
  Transmission Date: 20100710
  Serious: Yes (Other)
  Sender: FDA-Public Use
  Company Number: PHHY2010IN02457

PATIENT
  Age: 27 Year
  Sex: Female

DRUGS (5)
  1. CYCLOSPORINE [Suspect]
     Indication: PUSTULAR PSORIASIS
     Dosage: 150 MG/DAY, IN DIVIDED DOSES
  2. CYCLOSPORINE [Suspect]
     Dosage: 50 MG/DAY
  3. CYCLOSPORINE [Suspect]
     Dosage: 150 MG/DAY
  4. PREDNISOLONE [Concomitant]
     Indication: PUSTULAR PSORIASIS
     Dosage: 30 MG/DAY
  5. PREDNISOLONE [Concomitant]
     Dosage: 10 MG/DAY

REACTIONS (3)
  - CAESAREAN SECTION [None]
  - DRUG EXPOSURE DURING PREGNANCY [None]
  - PSORIASIS [None]
